FAERS Safety Report 12147694 (Version 1)
Quarter: 2016Q1

REPORT INFORMATION
  Report Type: Spontaneous
  Country: DE (occurrence: DE)
  Receive Date: 20160304
  Receipt Date: 20160304
  Transmission Date: 20160526
  Serious: Yes (Hospitalization)
  Sender: FDA-Public Use
  Company Number: DE-JNJFOC-20160226624

PATIENT
  Age: 6 Decade
  Sex: Female
  Weight: 88 kg

DRUGS (1)
  1. SIMPONI [Suspect]
     Active Substance: GOLIMUMAB
     Indication: PRODUCT USED FOR UNKNOWN INDICATION
     Route: 058
     Dates: start: 20140821, end: 20141124

REACTIONS (1)
  - Shoulder operation [Not Recovered/Not Resolved]

NARRATIVE: CASE EVENT DATE: 20160209
